FAERS Safety Report 10895933 (Version 2)
Quarter: 2015Q4

REPORT INFORMATION
  Report Type: Spontaneous
  Country: FI (occurrence: FI)
  Receive Date: 20150307
  Receipt Date: 20151027
  Transmission Date: 20160304
  Serious: Yes (Other)
  Sender: FDA-Public Use
  Company Number: FI-MERZ NORTH AMERICA, INC.-15MRZ-00100

PATIENT
  Age: 64 Year
  Sex: Female

DRUGS (19)
  1. DEVISOL [Concomitant]
     Indication: PRODUCT USED FOR UNKNOWN INDICATION
     Route: 048
  2. DIASPORAL [Concomitant]
     Indication: PRODUCT USED FOR UNKNOWN INDICATION
     Dosage: NOT REPORTED
  3. OMEGA 3 [Concomitant]
     Active Substance: OMEGA-3 FATTY ACIDS
     Indication: PRODUCT USED FOR UNKNOWN INDICATION
     Dosage: 1 CAPSULE
     Route: 048
  4. KALCIPOS [Concomitant]
     Active Substance: CALCIUM CARBONATE
     Indication: PRODUCT USED FOR UNKNOWN INDICATION
     Dosage: KALCIPOS-D
     Route: 048
  5. ARTHRYL [Concomitant]
     Indication: PRODUCT USED FOR UNKNOWN INDICATION
  6. ESTRADOT [Concomitant]
     Active Substance: ESTRADIOL
     Indication: PRODUCT USED FOR UNKNOWN INDICATION
     Dosage: 2 IN 1 WEEK
  7. OFTAN A-PANT [Concomitant]
     Indication: PRODUCT USED FOR UNKNOWN INDICATION
     Dosage: AS REQUIRED
  8. CIRCADIN [Concomitant]
     Active Substance: MELATONIN
     Indication: PRODUCT USED FOR UNKNOWN INDICATION
     Dosage: 3 - 4 TABLETS EVERY NIGHT
     Route: 048
  9. KALCIPOS [Concomitant]
     Active Substance: CALCIUM CARBONATE
     Indication: PRODUCT USED FOR UNKNOWN INDICATION
  10. OFTAGEL [Concomitant]
     Active Substance: CARBOMER
     Indication: PRODUCT USED FOR UNKNOWN INDICATION
     Dosage: AS REQUIRED
  11. EVENING PRIMOSE OIL [Concomitant]
     Indication: PRODUCT USED FOR UNKNOWN INDICATION
     Dosage: 1 CAPSULE
  12. VITAMIN B [Concomitant]
     Active Substance: VITAMIN B
     Indication: PRODUCT USED FOR UNKNOWN INDICATION
     Dosage: NOT REPORTED
  13. HIPEKSAL [Concomitant]
     Indication: URINARY TRACT INFECTION
     Dosage: FOR YEARS
  14. MELATONIN [Concomitant]
     Active Substance: MELATONIN
     Indication: PRODUCT USED FOR UNKNOWN INDICATION
     Dosage: AT NIGHT
  15. MAGNESIUM [Concomitant]
     Active Substance: MAGNESIUM
     Indication: PRODUCT USED FOR UNKNOWN INDICATION
     Dosage: 2 TABLETS
     Route: 048
  16. CALCIUM [Concomitant]
     Active Substance: CALCIUM
     Indication: PRODUCT USED FOR UNKNOWN INDICATION
     Dosage: NOT REPORTED
     Dates: start: 20141013, end: 20141013
  17. IMOVANE [Concomitant]
     Active Substance: ZOPICLONE
     Indication: PRODUCT USED FOR UNKNOWN INDICATION
     Dosage: 1 - 2 TABLETS AT NIGHT
     Route: 048
  18. XEOMIN [Suspect]
     Active Substance: INCOBOTULINUMTOXINA
     Indication: TEMPOROMANDIBULAR JOINT SYNDROME
     Dosage: 80 UNITS TOTAL DOSE
     Dates: start: 20141013, end: 20141013
  19. OVESTIN [Concomitant]
     Active Substance: ESTRIOL
     Indication: PRODUCT USED FOR UNKNOWN INDICATION
     Dosage: 2 IN 1 WEEK

REACTIONS (90)
  - Glossodynia [None]
  - Cough [None]
  - Haemoptysis [None]
  - Abdominal discomfort [None]
  - Tremor [None]
  - Altered state of consciousness [None]
  - Eye swelling [None]
  - Speech disorder [None]
  - Accommodation disorder [None]
  - Immune system disorder [None]
  - Anger [None]
  - Musculoskeletal pain [None]
  - Glossodynia [None]
  - Dyspnoea [None]
  - Off label use [None]
  - Bronchitis [None]
  - Suffocation feeling [None]
  - Oral disorder [None]
  - Insomnia [None]
  - Neck pain [None]
  - Urinary tract infection [None]
  - Renal pain [None]
  - Hypoaesthesia [None]
  - Pain [None]
  - Dysphonia [None]
  - Injection site swelling [None]
  - Visual acuity reduced [None]
  - Neuropathy peripheral [None]
  - Dry mouth [None]
  - Fatigue [None]
  - Mouth swelling [None]
  - Gingival pain [None]
  - Eye pain [None]
  - Cardiac disorder [None]
  - Dry eye [None]
  - Swollen tongue [None]
  - Headache [None]
  - Burning sensation [None]
  - Condition aggravated [None]
  - Dysphagia [None]
  - Syncope [None]
  - Eye pain [None]
  - Vision blurred [None]
  - Tremor [None]
  - Mood altered [None]
  - Dyspepsia [None]
  - Eyelid ptosis [None]
  - Nausea [None]
  - Vomiting [None]
  - Influenza like illness [None]
  - Toothache [None]
  - Eyelid disorder [None]
  - Dysgeusia [None]
  - Pharyngeal oedema [None]
  - Dry throat [None]
  - Diarrhoea [None]
  - Lacrimation increased [None]
  - Paraesthesia [None]
  - Muscle spasms [None]
  - Oral pain [None]
  - Memory impairment [None]
  - Burn of internal organs [None]
  - Pain in jaw [None]
  - Erythema [None]
  - Injection site pain [None]
  - Drug hypersensitivity [None]
  - Pyrexia [None]
  - Respiratory disorder [None]
  - Head discomfort [None]
  - Feeling cold [None]
  - Muscle spasms [None]
  - Pruritus [None]
  - Abdominal distension [None]
  - Ear pain [None]
  - Throat irritation [None]
  - Dyspepsia [None]
  - Incontinence [None]
  - Pulmonary pain [None]
  - Dizziness [None]
  - Muscle atrophy [None]
  - Choking [None]
  - VIIth nerve paralysis [None]
  - Hypopnoea [None]
  - Muscle spasms [None]
  - Eating disorder [None]
  - Hypoaesthesia [None]
  - Hearing impaired [None]
  - Burning sensation [None]
  - Asthenia [None]
  - Muscle twitching [None]

NARRATIVE: CASE EVENT DATE: 20141014
